FAERS Safety Report 9270249 (Version 1)
Quarter: 2013Q2

REPORT INFORMATION
  Report Type: Spontaneous
  Country: US (occurrence: US)
  Receive Date: 20130503
  Receipt Date: 20130503
  Transmission Date: 20140414
  Serious: Yes (Other)
  Sender: FDA-Public Use
  Company Number: US-BAYER-2013-053818

PATIENT
  Age: 24 Year
  Sex: Female

DRUGS (1)
  1. BEYAZ [Suspect]
     Indication: OVARIAN CYST
     Dosage: UNK
     Route: 048
     Dates: start: 20130411, end: 201304

REACTIONS (4)
  - Genital haemorrhage [Not Recovered/Not Resolved]
  - Off label use [None]
  - Abdominal distension [Not Recovered/Not Resolved]
  - Vomiting [Not Recovered/Not Resolved]
